FAERS Safety Report 4294123-8 (Version None)
Quarter: 2004Q1

REPORT INFORMATION
  Report Type: 
  Country: None (occurrence: None)
  Receive Date: 20040213
  Receipt Date: 20040205
  Transmission Date: 20041129
  Serious: Yes (Hospitalization)
  Sender: FDA-Public Use
  Company Number: FR-BRISTOL-MYERS SQUIBB COMPANY-12497848

PATIENT
  Age: 21 Year
  Sex: Male

DRUGS (1)
  1. MODITEN ENANTHATE [Suspect]
     Dosage: DOSE VALUE:  75 MG/ML
     Route: 030
     Dates: start: 20000302, end: 20000302

REACTIONS (1)
  - TORTICOLLIS [None]
